FAERS Safety Report 5011363-0 (Version None)
Quarter: 2006Q2

REPORT INFORMATION
  Report Type: 
  Country: None (occurrence: None)
  Receive Date: 20060404
  Receipt Date: 20060110
  Transmission Date: 20061013
  Serious: No
  Sender: FDA-Public Use
  Company Number: US200601001626

PATIENT
  Sex: Female

DRUGS (1)
  1. CYMBALTA [Suspect]
     Indication: DEPRESSION SUICIDAL
     Dosage: 90 MG
     Dates: start: 20050901

REACTIONS (2)
  - NAUSEA [None]
  - PAROSMIA [None]
